FAERS Safety Report 7334127-1 (Version None)
Quarter: 2011Q1

REPORT INFORMATION
  Report Type: 
  Country: None (occurrence: None)
  Receive Date: 20110307
  Receipt Date: 20110221
  Transmission Date: 20110831
  Serious: Yes (Other)
  Sender: FDA-Public Use
  Company Number: GB-RANBAXY-2009RR-29873

PATIENT
  Age: 17 Year
  Sex: Male

DRUGS (19)
  1. DEXRAZOXANE [Suspect]
     Indication: ILL-DEFINED DISORDER
     Route: 065
  2. COTRIM [Suspect]
     Indication: PROPHYLAXIS
     Route: 065
  3. ITRACONAZOLE [Suspect]
     Indication: PROPHYLAXIS
     Route: 065
  4. TACROLIMUS [Suspect]
     Indication: IMMUNOSUPPRESSION
     Route: 065
  5. ETOPOSIDE [Suspect]
     Indication: ILL-DEFINED DISORDER
     Route: 065
  6. ACYCLOVIR [Suspect]
     Indication: PROPHYLAXIS
     Route: 065
  7. PREDNISOLONE [Suspect]
     Indication: BURKITT'S LYMPHOMA
     Dosage: 2 UNK, UNK
     Route: 065
  8. MERCAPTOPURINE [Suspect]
     Indication: BURKITT'S LYMPHOMA
     Route: 065
  9. METHOTREXATE [Suspect]
     Indication: BURKITT'S LYMPHOMA
     Dosage: 6 DF, UNK
     Route: 037
  10. VINCRISTINE [Suspect]
     Indication: BURKITT'S LYMPHOMA
     Dosage: 6 MG/M2, UNK
     Route: 065
  11. ARA-C [Suspect]
     Indication: BURKITT'S LYMPHOMA
     Dosage: 1000 MG/M2, UNK
     Route: 065
  12. VP-16 [Suspect]
     Indication: BURKITT'S LYMPHOMA
     Route: 065
  13. CAELYX [Suspect]
     Indication: BURKITT'S LYMPHOMA
     Dosage: 200 MG/M2, UNK
     Route: 042
  14. THIOGUANINE [Suspect]
     Indication: BURKITT'S LYMPHOMA
     Dosage: 750 MG/M2, UNK
  15. RITUXIMAB [Suspect]
     Indication: BURKITT'S LYMPHOMA
     Dosage: 375 MG/M2, UNK
     Route: 065
  16. CYCLOPHOSPHAMIDE [Suspect]
     Indication: ILL-DEFINED DISORDER
     Route: 065
  17. PREDNISONE [Concomitant]
     Indication: ILL-DEFINED DISORDER
     Route: 065
  18. ONCOVIN [Suspect]
     Indication: BURKITT'S LYMPHOMA
     Route: 065
  19. MERCAPTOPURINE [Suspect]
     Indication: ILL-DEFINED DISORDER
     Route: 065

REACTIONS (2)
  - NEUTROPENIA [None]
  - RENAL IMPAIRMENT [None]
